FAERS Safety Report 6344524-9 (Version None)
Quarter: 2009Q3

REPORT INFORMATION
  Report Type: 
  Country: None (occurrence: None)
  Receive Date: 20090908
  Receipt Date: 20090826
  Transmission Date: 20100115
  Serious: Yes (Hospitalization)
  Sender: FDA-Public Use
  Company Number: FR-PFIZER INC-2009259739

PATIENT
  Age: 78 Year

DRUGS (7)
  1. ALDACTONE [Suspect]
     Dosage: 75 MG, 1X/DAY
     Route: 048
     Dates: end: 20090329
  2. LAMALINE [Suspect]
     Indication: ABDOMINAL CAVITY DRAINAGE
     Dosage: 6 DF, 1X/DAY
     Route: 048
     Dates: start: 20090324, end: 20090329
  3. INIPOMP [Concomitant]
     Dosage: UNK
  4. NOROXIN [Concomitant]
     Dosage: UNK
  5. DUPHALAC [Concomitant]
     Dosage: UNK
  6. PROPRANOLOL HCL [Concomitant]
     Dosage: UNK
  7. ULTRA LEVURA [Concomitant]
     Dosage: UNK
     Dates: start: 20090324

REACTIONS (1)
  - HEPATIC ENCEPHALOPATHY [None]
